FAERS Safety Report 4631322-7 (Version None)
Quarter: 2005Q2

REPORT INFORMATION
  Report Type: 
  Country: None (occurrence: None)
  Receive Date: 20050406
  Receipt Date: 20050322
  Transmission Date: 20051028
  Serious: Yes (Hospitalization)
  Sender: FDA-Public Use
  Company Number: US_0503114589

PATIENT
  Age: 30 Year
  Sex: Male
  Weight: 77 kg

DRUGS (1)
  1. OLANZAPINE [Suspect]
     Indication: SCHIZOPHRENIA
     Dosage: 390 MG
     Dates: start: 20050205

REACTIONS (9)
  - ASTHENIA [None]
  - CONFUSIONAL STATE [None]
  - DISORIENTATION [None]
  - IRRITABILITY [None]
  - LOSS OF CONSCIOUSNESS [None]
  - MUSCULOSKELETAL STIFFNESS [None]
  - PYREXIA [None]
  - SEDATION [None]
  - SOMNOLENCE [None]
